FAERS Safety Report 5055375-X (Version None)
Quarter: 2006Q2

REPORT INFORMATION
  Report Type: 
  Country: None (occurrence: None)
  Receive Date: 20060616
  Receipt Date: 20060224
  Transmission Date: 20061013
  Serious: No
  Sender: FDA-Public Use
  Company Number: 2006US000430

PATIENT
  Age: 71 Year
  Sex: Female

DRUGS (11)
  1. VESICARE [Suspect]
     Indication: URINARY INCONTINENCE
     Dosage: ORAL
     Route: 048
     Dates: start: 20050201, end: 20060218
  2. LOTENSIN [Concomitant]
  3. ATENOLOL [Concomitant]
  4. ESTRACE [Concomitant]
  5. CELEBREX [Concomitant]
  6. MECLIZINE [Concomitant]
  7. ADVAIR DISKUS 100/50 [Concomitant]
  8. LIPITOR [Concomitant]
  9. XOLAIR [Concomitant]
  10. VITORIN [Concomitant]
  11. MAXAIR [Concomitant]

REACTIONS (3)
  - DRY MOUTH [None]
  - GLOSSODYNIA [None]
  - HEART RATE IRREGULAR [None]
